FAERS Safety Report 4366290-9 (Version None)
Quarter: 2004Q2

REPORT INFORMATION
  Report Type: 
  Country: None (occurrence: None)
  Receive Date: 20040526
  Receipt Date: 20040526
  Transmission Date: 20050107
  Serious: Yes (Other)
  Sender: FDA-Public Use
  Company Number: None

PATIENT
  Age: 76 Year
  Sex: Male
  Weight: 112.5 kg

DRUGS (10)
  1. LASIX [Suspect]
  2. AMLODIPINE BESYLATE [Concomitant]
  3. BUMETANIDE [Concomitant]
  4. HYDROXYZINE PAMOTE [Concomitant]
  5. NITROGLYCERIN [Concomitant]
  6. HYDROCORITISONE [Concomitant]
  7. COUMADIN [Concomitant]
  8. LISINOPRIL [Concomitant]
  9. SIMVASTATIN [Concomitant]
  10. FUROSEMIDE [Concomitant]

REACTIONS (1)
  - RASH [None]
